FAERS Safety Report 16081112 (Version 2)
Quarter: 2019Q2

REPORT INFORMATION
  Report Type: Spontaneous
  Country: PT (occurrence: PT)
  Receive Date: 20190316
  Receipt Date: 20190517
  Transmission Date: 20190711
  Serious: Yes (Hospitalization, Other)
  Sender: FDA-Public Use
  Company Number: PT-ACCORD-112865

PATIENT
  Age: 62 Year
  Sex: Female

DRUGS (5)
  1. METHOTREXATE. [Suspect]
     Active Substance: METHOTREXATE
     Indication: RHEUMATOID ARTHRITIS
     Dosage: 12.5 MG?12.5 MILLIGRAM DAILY, FOR ONE MONTH
     Route: 048
  2. LEFLUNOMIDE. [Concomitant]
     Active Substance: LEFLUNOMIDE
     Route: 048
  3. METFORMIN [Concomitant]
     Active Substance: METFORMIN HYDROCHLORIDE
     Indication: DIABETES MELLITUS
  4. PREDNISOLONE. [Concomitant]
     Active Substance: PREDNISOLONE
     Route: 048
  5. GLIBENCLAMIDE [Concomitant]
     Active Substance: GLYBURIDE
     Indication: DIABETES MELLITUS
     Route: 048

REACTIONS (9)
  - Oedema [Recovered/Resolved]
  - C-reactive protein increased [Recovered/Resolved]
  - Inappropriate schedule of product administration [Unknown]
  - Pain [Recovered/Resolved]
  - Stomatitis [Recovered/Resolved]
  - Accidental overdose [Unknown]
  - Mouth ulceration [Recovered/Resolved]
  - Hepatic enzyme increased [Recovered/Resolved]
  - Pancytopenia [Recovered/Resolved]
